FAERS Safety Report 8277309-7 (Version None)
Quarter: 2012Q2

REPORT INFORMATION
  Report Type: 
  Country: None (occurrence: None)
  Receive Date: 20120412
  Receipt Date: 20120402
  Transmission Date: 20120825
  Serious: Yes (Death, Hospitalization)
  Sender: FDA-Public Use
  Company Number: FR-GLAXOSMITHKLINE-B0787246A

PATIENT
  Sex: Female
  Weight: 60 kg

DRUGS (8)
  1. ASPIRIN [Suspect]
     Indication: PRODUCT USED FOR UNKNOWN INDICATION
     Dosage: 75MG PER DAY
     Route: 048
     Dates: start: 20110719, end: 20110924
  2. BISOPROLOL FUMARATE [Concomitant]
     Dosage: 1.25MG PER DAY
     Route: 048
  3. NOVORAPID [Concomitant]
     Route: 058
     Dates: start: 20110907
  4. LASIX [Concomitant]
     Dosage: 1TAB TWICE PER DAY
     Route: 048
     Dates: start: 20110719
  5. TERCIAN [Concomitant]
     Dosage: 10DROP AT NIGHT
     Route: 048
     Dates: start: 20110920
  6. INNOHEP [Suspect]
     Indication: PRODUCT USED FOR UNKNOWN INDICATION
     Dosage: .6ML PER DAY
     Route: 058
     Dates: start: 20110910, end: 20110922
  7. ARIXTRA [Suspect]
     Indication: PRODUCT USED FOR UNKNOWN INDICATION
     Dosage: 7.5MG PER DAY
     Route: 058
     Dates: start: 20110923, end: 20110924
  8. LEVOTHYROXINE SODIUM [Concomitant]
     Dosage: 100MCG PER DAY
     Route: 048
     Dates: start: 20110801

REACTIONS (1)
  - SUBDURAL HAEMATOMA [None]
